FAERS Safety Report 5440691-X (Version None)
Quarter: 2007Q3

REPORT INFORMATION
  Report Type: 
  Country: None (occurrence: None)
  Receive Date: 20070831
  Receipt Date: 20070815
  Transmission Date: 20080115
  Serious: No
  Sender: FDA-Public Use
  Company Number: US-BOEHRINGER INGELHEIM PHARMACEUTICALS, INC.-2007-BP-17734BP

PATIENT
  Age: 59 Year
  Sex: Female

DRUGS (1)
  1. MIRAPEX [Suspect]
     Indication: MUSCLE SPASMS
     Route: 048
     Dates: end: 20070628

REACTIONS (1)
  - SUDDEN ONSET OF SLEEP [None]
